FAERS Safety Report 13430958 (Version 6)
Quarter: 2017Q2

REPORT INFORMATION
  Report Type: Report from Study
  Country: US (occurrence: US)
  Receive Date: 20170412
  Receipt Date: 20170626
  Transmission Date: 20170830
  Serious: Yes (Death, Hospitalization, Other)
  Sender: FDA-Public Use
  Company Number: US-GILEAD-2017-0267188

PATIENT
  Age: 83 Year
  Sex: Female
  Weight: 73.47 kg

DRUGS (25)
  1. AMBRISENTAN [Suspect]
     Active Substance: AMBRISENTAN
     Indication: SCLERODERMA
  2. ELIQUIS [Concomitant]
     Active Substance: APIXABAN
  3. ASA [Concomitant]
     Active Substance: ASPIRIN
  4. CARDIZEM CD [Concomitant]
     Active Substance: DILTIAZEM HYDROCHLORIDE
  5. GLYCOLAX [Concomitant]
     Active Substance: POLYETHYLENE GLYCOL 3350
  6. AMBRISENTAN [Suspect]
     Active Substance: AMBRISENTAN
     Indication: PULMONARY ARTERIAL HYPERTENSION
     Dosage: 5 MG, QD
     Route: 048
     Dates: start: 20161031, end: 201706
  7. VITAMIN D3 [Concomitant]
     Active Substance: CHOLECALCIFEROL
  8. FISH OIL [Concomitant]
     Active Substance: FISH OIL
  9. PREPARATION H HYDROCORTISONE [Concomitant]
     Active Substance: HYDROCORTISONE
  10. SPIRONOLACTONE. [Concomitant]
     Active Substance: SPIRONOLACTONE
  11. MYRBETRIQ [Concomitant]
     Active Substance: MIRABEGRON
  12. TORSEMIDE. [Concomitant]
     Active Substance: TORSEMIDE
  13. UPTRAVI [Concomitant]
     Active Substance: SELEXIPAG
  14. ALLOPURINOL. [Concomitant]
     Active Substance: ALLOPURINOL
  15. CYMBALTA [Concomitant]
     Active Substance: DULOXETINE HYDROCHLORIDE
  16. LEVAQUIN [Concomitant]
     Active Substance: LEVOFLOXACIN
  17. REMEDY CALAZIME [Concomitant]
  18. LIPITOR [Concomitant]
     Active Substance: ATORVASTATIN CALCIUM
  19. PREVACID [Concomitant]
     Active Substance: LANSOPRAZOLE
  20. REQUIP [Concomitant]
     Active Substance: ROPINIROLE HYDROCHLORIDE
  21. TRAMADOL. [Concomitant]
     Active Substance: TRAMADOL
  22. PRESERVISION [Concomitant]
     Active Substance: MINERALS\VITAMINS
  23. DILTIAZEM. [Concomitant]
     Active Substance: DILTIAZEM
  24. REVATIO [Concomitant]
     Active Substance: SILDENAFIL CITRATE
  25. BENEFIBER                          /00677201/ [Concomitant]
     Active Substance: ICODEXTRIN

REACTIONS (17)
  - Death [Fatal]
  - Hypoxia [Unknown]
  - Haemoptysis [Unknown]
  - Diarrhoea [Recovered/Resolved]
  - Dysphagia [Not Recovered/Not Resolved]
  - Aspiration [Not Recovered/Not Resolved]
  - Atrial fibrillation [Unknown]
  - Anaemia [Not Recovered/Not Resolved]
  - Fatigue [Not Recovered/Not Resolved]
  - Pneumonia aspiration [Unknown]
  - Urinary tract infection [Unknown]
  - Cough [Not Recovered/Not Resolved]
  - Hyporeflexia [Unknown]
  - Dyspnoea [Not Recovered/Not Resolved]
  - Pneumonia [Unknown]
  - Aspiration [Unknown]
  - Acute kidney injury [Unknown]

NARRATIVE: CASE EVENT DATE: 20170403
